FAERS Safety Report 13157172 (Version 1)
Quarter: 2017Q1

REPORT INFORMATION
  Report Type: Spontaneous
  Country: US (occurrence: US)
  Receive Date: 20170127
  Receipt Date: 20170127
  Transmission Date: 20170428
  Serious: Yes (Hospitalization, Other)
  Sender: FDA-Public Use
  Company Number: US-ALVOGEN-2017-ALVOGEN-091332

PATIENT
  Age: 16 Year
  Sex: Female

DRUGS (9)
  1. LORAZEPAM. [Interacting]
     Active Substance: LORAZEPAM
     Indication: ANXIETY
  2. OLANZAPINE. [Interacting]
     Active Substance: OLANZAPINE
  3. BENZATROPINE MESILATE [Interacting]
     Active Substance: BENZTROPINE
  4. CLONAZEPAM. [Interacting]
     Active Substance: CLONAZEPAM
  5. FLUOXETINE [Suspect]
     Active Substance: FLUOXETINE HYDROCHLORIDE
  6. DIPHENHYDRAMINE. [Interacting]
     Active Substance: DIPHENHYDRAMINE
  7. CHLOROQUINE. [Interacting]
     Active Substance: CHLOROQUINE
     Indication: MALARIA PROPHYLAXIS
  8. RISPERIDONE. [Interacting]
     Active Substance: RISPERIDONE
  9. AZITHROMYCIN ANHYDROUS. [Concomitant]
     Active Substance: AZITHROMYCIN ANHYDROUS
     Indication: PNEUMONIA MYCOPLASMAL

REACTIONS (12)
  - Toxicity to various agents [Recovering/Resolving]
  - Drug interaction [Recovering/Resolving]
  - Insomnia [Recovering/Resolving]
  - Toxic encephalopathy [Recovering/Resolving]
  - Areflexia [Recovering/Resolving]
  - Paranoia [Recovering/Resolving]
  - Condition aggravated [Recovering/Resolving]
  - Amaurosis [Recovering/Resolving]
  - Anxiety [Recovering/Resolving]
  - Facial paralysis [Recovering/Resolving]
  - Mydriasis [Recovering/Resolving]
  - Hallucination [Recovering/Resolving]
